FAERS Safety Report 13285411 (Version 6)
Quarter: 2017Q2

REPORT INFORMATION
  Report Type: Spontaneous
  Country: GB (occurrence: GB)
  Receive Date: 20170301
  Receipt Date: 20170418
  Transmission Date: 20170830
  Serious: Yes (Other)
  Sender: FDA-Public Use
  Company Number: GB-MUNDIPHARMA DS AND PHARMACOVIGILANCE-GBR-2017-0043731

PATIENT
  Age: 87 Year
  Sex: Female
  Weight: 46 kg

DRUGS (6)
  1. MORPHINE SULFATE. [Suspect]
     Active Substance: MORPHINE SULFATE
     Indication: PAIN
     Route: 065
  2. ASPIRIN. [Concomitant]
     Active Substance: ASPIRIN
     Dosage: UNK, DAILY [1/1 DAYS]
  3. OLIVE OIL [Concomitant]
     Active Substance: OLIVE OIL
     Dosage: IN HER EARS
  4. PROLIA [Suspect]
     Active Substance: DENOSUMAB
     Indication: OSTEOPOROSIS
     Dosage: UNK
     Route: 058
     Dates: start: 20170124
  5. THYROXINE [Concomitant]
     Active Substance: LEVOTHYROXINE
     Indication: HYPOTHYROIDISM
     Dosage: 75 MG, UNK
  6. GTN [Concomitant]
     Active Substance: NITROGLYCERIN
     Indication: HEART DISEASE CONGENITAL
     Route: 061

REACTIONS (25)
  - Skin discolouration [Recovered/Resolved]
  - Incontinence [Recovered/Resolved]
  - Cellulitis [Recovered/Resolved]
  - Stress [Recovered/Resolved]
  - Decreased appetite [Recovered/Resolved]
  - Hypoacusis [Recovered/Resolved]
  - Ear infection [Recovered/Resolved]
  - Bone pain [Recovered/Resolved]
  - Deafness unilateral [Recovered/Resolved]
  - Constipation [Recovered/Resolved]
  - Bone disorder [Recovered/Resolved]
  - Feeling cold [Recovered/Resolved]
  - Influenza like illness [Recovered/Resolved]
  - Gait disturbance [Recovered/Resolved]
  - Urinary tract infection [Recovered/Resolved]
  - Malaise [Recovered/Resolved]
  - Abdominal pain [Recovered/Resolved]
  - Drug ineffective [Recovered/Resolved]
  - Cardiac disorder [Recovered/Resolved]
  - Erythema [Recovered/Resolved]
  - Procedural pain [Recovered/Resolved]
  - Hypertension [Recovered/Resolved]
  - Oropharyngeal pain [Recovered/Resolved]
  - Weight decreased [Recovered/Resolved]
  - Drug-disease interaction [Recovered/Resolved]

NARRATIVE: CASE EVENT DATE: 201701
